FAERS Safety Report 24453348 (Version 2)
Quarter: 2024Q4

REPORT INFORMATION
  Report Type: Report from Study
  Country: US (occurrence: US)
  Receive Date: 20241017
  Receipt Date: 20241018
  Transmission Date: 20250115
  Serious: No
  Sender: ROCHE
  Company Number: US-ROCHE-3234033

PATIENT
  Age: 58 Year
  Sex: Male
  Weight: 109.32 kg

DRUGS (18)
  1. RITUXAN [Suspect]
     Active Substance: RITUXIMAB
     Indication: Idiopathic pulmonary fibrosis
     Route: 065
  2. ESBRIET [Suspect]
     Active Substance: PIRFENIDONE
     Indication: Idiopathic pulmonary fibrosis
     Route: 048
  3. ESBRIET [Suspect]
     Active Substance: PIRFENIDONE
     Indication: Chronic respiratory failure
  4. ESBRIET [Suspect]
     Active Substance: PIRFENIDONE
     Indication: Hypoxia
  5. ACETAMINOPHEN [Concomitant]
     Active Substance: ACETAMINOPHEN
  6. ALBUTEROL SULFATE [Concomitant]
     Active Substance: ALBUTEROL SULFATE
  7. CETIRIZINE HYDROCHLORIDE [Concomitant]
     Active Substance: CETIRIZINE HYDROCHLORIDE
  8. FUROSEMIDE [Concomitant]
     Active Substance: FUROSEMIDE
  9. GABAPENTIN [Concomitant]
     Active Substance: GABAPENTIN
  10. ASCORBIC ACID [Concomitant]
     Active Substance: ASCORBIC ACID
  11. ATORVASTATIN [Concomitant]
     Active Substance: ATORVASTATIN
     Route: 048
  12. AZITHROMYCIN [Concomitant]
     Active Substance: AZITHROMYCIN
  13. OMEPRAZOLE [Concomitant]
     Active Substance: OMEPRAZOLE
  14. POTASSIUM GLUCONATE [Concomitant]
     Active Substance: POTASSIUM GLUCONATE
  15. PREDNISONE [Concomitant]
     Active Substance: PREDNISONE
  16. SEROQUEL [Concomitant]
     Active Substance: QUETIAPINE FUMARATE
  17. ANORO ELLIPTA [Concomitant]
     Active Substance: UMECLIDINIUM BROMIDE\VILANTEROL TRIFENATATE
  18. VITAMIN B COMPLEX [Concomitant]
     Active Substance: CYANOCOBALAMIN\DEXPANTHENOL\NIACINAMIDE\PYRIDOXINE HYDROCHLORIDE\RIBOFLAVIN 5^-PHOSPHATE SODIUM\THIA

REACTIONS (8)
  - Gastrointestinal disorder [Unknown]
  - Dyspnoea [Unknown]
  - Upper-airway cough syndrome [Unknown]
  - Tinnitus [Unknown]
  - Dyspnoea [Unknown]
  - Back pain [Unknown]
  - Respiratory disorder [Unknown]
  - Drug ineffective [Unknown]
